FAERS Safety Report 12528846 (Version 3)
Quarter: 2016Q4

REPORT INFORMATION
  Report Type: Spontaneous
  Country: JP (occurrence: JP)
  Receive Date: 20160705
  Receipt Date: 20161223
  Transmission Date: 20170207
  Serious: Yes (Other)
  Sender: FDA-Public Use
  Company Number: JP-GILEAD-2016-0221163

PATIENT
  Age: 67 Year
  Sex: Male

DRUGS (20)
  1. THYRADIN [Concomitant]
     Active Substance: LEVOTHYROXINE
     Route: 048
  2. ZOPICLONE [Concomitant]
     Active Substance: ZOPICLONE
     Route: 048
  3. ZOPICLONE [Concomitant]
     Active Substance: ZOPICLONE
     Route: 048
  4. TRUVADA [Suspect]
     Active Substance: EMTRICITABINE\TENOFOVIR DISOPROXIL FUMARATE
     Indication: HIV INFECTION
     Dosage: UNK
     Route: 048
     Dates: end: 201603
  5. ALLOPURINOL. [Concomitant]
     Active Substance: ALLOPURINOL
     Route: 048
  6. ISENTRESS [Suspect]
     Active Substance: RALTEGRAVIR POTASSIUM
     Indication: HIV INFECTION
     Route: 048
     Dates: start: 201603
  7. VOGLIBOSE [Concomitant]
     Active Substance: VOGLIBOSE
     Route: 048
  8. HARNAL [Concomitant]
     Active Substance: TAMSULOSIN HYDROCHLORIDE
     Route: 065
  9. TRUVADA [Suspect]
     Active Substance: EMTRICITABINE\TENOFOVIR DISOPROXIL FUMARATE
     Dosage: UNK
     Route: 048
     Dates: start: 201603, end: 201608
  10. TIVICAY [Concomitant]
     Active Substance: DOLUTEGRAVIR SODIUM
     Route: 048
     Dates: end: 201603
  11. VOGLIBOSE [Concomitant]
     Active Substance: VOGLIBOSE
     Route: 048
  12. ALLOPURINOL. [Concomitant]
     Active Substance: ALLOPURINOL
     Route: 048
  13. TAMSULOSIN HYDROCHLORIDE. [Concomitant]
     Active Substance: TAMSULOSIN HYDROCHLORIDE
     Route: 048
  14. VOGLIBOSE [Concomitant]
     Active Substance: VOGLIBOSE
     Route: 048
  15. ZOPICLONE [Concomitant]
     Active Substance: ZOPICLONE
     Route: 048
  16. TAMSULOSIN HYDROCHLORIDE. [Concomitant]
     Active Substance: TAMSULOSIN HYDROCHLORIDE
     Route: 048
  17. TAMSULOSIN HYDROCHLORIDE. [Concomitant]
     Active Substance: TAMSULOSIN HYDROCHLORIDE
     Route: 048
  18. THYRADIN [Concomitant]
     Active Substance: LEVOTHYROXINE
     Route: 048
  19. THYRADIN [Concomitant]
     Active Substance: LEVOTHYROXINE
     Route: 048
  20. ALLOPURINOL. [Concomitant]
     Active Substance: ALLOPURINOL
     Route: 048

REACTIONS (3)
  - Mydriasis [Not Recovered/Not Resolved]
  - Pupillary reflex impaired [Not Recovered/Not Resolved]
  - IIIrd nerve paralysis [Not Recovered/Not Resolved]

NARRATIVE: CASE EVENT DATE: 20160520
